FAERS Safety Report 10170871 (Version 1)
Quarter: 2014Q2

REPORT INFORMATION
  Report Type: Spontaneous
  Country: AU (occurrence: AU)
  Receive Date: 20140514
  Receipt Date: 20140514
  Transmission Date: 20141212
  Serious: Yes (Hospitalization)
  Sender: FDA-Public Use
  Company Number: AU-ROCHE-1398577

PATIENT
  Age: 34 Year
  Sex: Female

DRUGS (8)
  1. XOLAIR [Suspect]
     Indication: ASTHMA
     Route: 058
     Dates: start: 20140224
  2. XOLAIR [Suspect]
     Route: 058
     Dates: start: 20140310, end: 20140310
  3. SYMBICORT [Concomitant]
  4. SERETIDE [Concomitant]
  5. MONTELUKAST [Concomitant]
  6. TERBUTALINE SULFATE [Concomitant]
  7. VENLAFAXINE [Concomitant]
     Route: 065
  8. NASONEX [Concomitant]

REACTIONS (23)
  - Chest discomfort [Unknown]
  - Wheezing [Unknown]
  - Ventricular extrasystoles [Unknown]
  - Nausea [Unknown]
  - Dizziness [Unknown]
  - Blood pressure increased [Unknown]
  - Hypotension [Recovered/Resolved]
  - Malaise [Unknown]
  - Seasonal allergy [Recovering/Resolving]
  - Forced expiratory volume decreased [Unknown]
  - Heart rate increased [Unknown]
  - Sinus rhythm [Unknown]
  - Bradycardia [Recovered/Resolved]
  - Orthostatic hypotension [Recovered/Resolved]
  - Pulmonary function test abnormal [Recovered/Resolved]
  - Lethargy [Recovered/Resolved]
  - Palpitations [Recovered/Resolved]
  - Presyncope [Unknown]
  - Feeling hot [Unknown]
  - Dyspnoea [Unknown]
  - Pallor [Unknown]
  - Throat tightness [Recovered/Resolved]
  - Hyperhidrosis [Unknown]
